FAERS Safety Report 21815941 (Version 9)
Quarter: 2025Q1

REPORT INFORMATION
  Report Type: Report from Study
  Country: MX (occurrence: MX)
  Receive Date: 20230104
  Receipt Date: 20250115
  Transmission Date: 20250409
  Serious: Yes (Other)
  Sender: NOVARTIS
  Company Number: MX-002147023-NVSC2022MX151198

PATIENT
  Age: 54 Year
  Sex: Female
  Weight: 57 kg

DRUGS (7)
  1. GILENYA [Suspect]
     Active Substance: FINGOLIMOD HYDROCHLORIDE
     Indication: Multiple sclerosis
     Dosage: 0.5 MG, QD
     Route: 048
     Dates: start: 202112
  2. GILENYA [Suspect]
     Active Substance: FINGOLIMOD HYDROCHLORIDE
     Dosage: 0.5 MG, QD
     Route: 048
     Dates: start: 202202
  3. GILENYA [Suspect]
     Active Substance: FINGOLIMOD HYDROCHLORIDE
     Dosage: 1 DF (0.5 MG), QD
     Route: 048
  4. GILENYA [Suspect]
     Active Substance: FINGOLIMOD HYDROCHLORIDE
     Dosage: 0.5 MG, QD
     Route: 048
  5. GILENYA [Suspect]
     Active Substance: FINGOLIMOD HYDROCHLORIDE
     Dosage: 0.5 MG, QD
     Route: 048
  6. GILENYA [Suspect]
     Active Substance: FINGOLIMOD HYDROCHLORIDE
     Dosage: 1 DOSAGE FORM (0.5 MG), QD
     Route: 048
     Dates: end: 20220914
  7. GILENYA [Suspect]
     Active Substance: FINGOLIMOD HYDROCHLORIDE
     Dosage: 1 DOSAGE FORM (0.5 MG), QD
     Route: 048
     Dates: start: 202210

REACTIONS (34)
  - Glaucoma [Not Recovered/Not Resolved]
  - Multiple sclerosis relapse [Not Recovered/Not Resolved]
  - Gait disturbance [Recovered/Resolved]
  - Feeling hot [Recovered/Resolved]
  - Asthenia [Recovered/Resolved]
  - Clumsiness [Recovered/Resolved]
  - Fatigue [Recovered/Resolved]
  - Eye pain [Recovered/Resolved]
  - Laziness [Recovered/Resolved]
  - Lacrimation increased [Unknown]
  - Somnolence [Not Recovered/Not Resolved]
  - Headache [Not Recovered/Not Resolved]
  - Intraocular pressure increased [Recovered/Resolved]
  - Central nervous system lesion [Not Recovered/Not Resolved]
  - Exposure to toxic agent [Unknown]
  - Peripheral swelling [Recovered/Resolved]
  - Erythema [Not Recovered/Not Resolved]
  - Localised infection [Recovered/Resolved]
  - Pruritus [Recovered/Resolved]
  - Mood altered [Recovered/Resolved]
  - Stress [Unknown]
  - Hypoaesthesia [Recovered/Resolved]
  - Ocular hyperaemia [Unknown]
  - Memory impairment [Not Recovered/Not Resolved]
  - Speech disorder [Unknown]
  - Musculoskeletal stiffness [Not Recovered/Not Resolved]
  - Weight fluctuation [Not Recovered/Not Resolved]
  - Hypermetropia [Unknown]
  - Malaise [Unknown]
  - Alopecia [Recovering/Resolving]
  - Bradykinesia [Unknown]
  - Asthenia [Recovered/Resolved]
  - Fatigue [Recovering/Resolving]
  - Balance disorder [Not Recovered/Not Resolved]

NARRATIVE: CASE EVENT DATE: 20220601
